FAERS Safety Report 6089786-0 (Version None)
Quarter: 2009Q1

REPORT INFORMATION
  Report Type: 
  Country: None (occurrence: None)
  Receive Date: 20090224
  Receipt Date: 20090219
  Transmission Date: 20090719
  Serious: Yes (Other)
  Sender: FDA-Public Use
  Company Number: US-ABBOTT-09P-163-0558273-00

PATIENT
  Sex: Female
  Weight: 66.284 kg

DRUGS (2)
  1. SYNTHROID [Suspect]
     Indication: HYPOTHYROIDISM
     Route: 048
     Dates: start: 19890101
  2. ASPIRIN [Concomitant]
     Indication: DRUG USE FOR UNKNOWN INDICATION

REACTIONS (5)
  - ARTERIAL OCCLUSIVE DISEASE [None]
  - HEART RATE INCREASED [None]
  - HERPES ZOSTER [None]
  - PALPITATIONS [None]
  - VERTIGO [None]
